FAERS Safety Report 7886467-5 (Version None)
Quarter: 2011Q4

REPORT INFORMATION
  Report Type: 
  Country: None (occurrence: None)
  Receive Date: 20111102
  Receipt Date: 20110706
  Transmission Date: 20120403
  Serious: No
  Sender: FDA-Public Use
  Company Number: US-AMGEN-USASP2011034398

PATIENT
  Age: 60 Year
  Sex: Female

DRUGS (1)
  1. ENBREL [Suspect]
     Indication: RHEUMATOID ARTHRITIS
     Dosage: 50 MG, QWK
     Dates: start: 20010101

REACTIONS (8)
  - TOOTH INJURY [None]
  - TOOTHACHE [None]
  - TOOTH ABSCESS [None]
  - INJECTION SITE PAIN [None]
  - TOOTH DISCOLOURATION [None]
  - LOOSE TOOTH [None]
  - COUGH [None]
  - FINGER DEFORMITY [None]
